FAERS Safety Report 19427668 (Version 2)
Quarter: 2021Q3

REPORT INFORMATION
  Report Type: Spontaneous
  Country: GB (occurrence: GB)
  Receive Date: 20210617
  Receipt Date: 20210709
  Transmission Date: 20211014
  Serious: Yes (Hospitalization, Other)
  Sender: FDA-Public Use
  Company Number: GB-SUN PHARMACEUTICAL INDUSTRIES LTD-2021RR-300871

PATIENT
  Age: 62 Year
  Sex: Female

DRUGS (93)
  1. TRASTUZUMAB EMTANSINE [Suspect]
     Active Substance: ADO-TRASTUZUMAB EMTANSINE
     Indication: BREAST CANCER
     Dosage: 420 MILLIGRAM, 1 DOSE/3 WEEKS
     Route: 042
     Dates: start: 20181019, end: 20190927
  2. CHLORPHENAMINE [Concomitant]
     Active Substance: CHLORPHENIRAMINE MALEATE
     Indication: PRODUCT USED FOR UNKNOWN INDICATION
     Dosage: 10 MILLIGRAM, TAKEN PRIOR TO STUDY
     Route: 042
     Dates: start: 20180202
  3. CLOTRIMAZOLE. [Concomitant]
     Active Substance: CLOTRIMAZOLE
     Indication: PRODUCT USED FOR UNKNOWN INDICATION
     Dosage: UNK
     Route: 061
     Dates: start: 20180125
  4. COCODAMOL [Concomitant]
     Active Substance: ACETAMINOPHEN\CODEINE PHOSPHATE
     Indication: PRODUCT USED FOR UNKNOWN INDICATION
     Dosage: 1 DOSAGE FORM
     Route: 065
     Dates: start: 20180302
  5. COCODAMOL [Concomitant]
     Active Substance: ACETAMINOPHEN\CODEINE PHOSPHATE
     Dosage: 30/500 MG FORM STRENGTH
     Route: 048
     Dates: start: 20030104, end: 20180225
  6. CO?AMOXICLAV [Concomitant]
     Active Substance: AMOXICILLIN\CLAVULANATE POTASSIUM
     Indication: PRODUCT USED FOR UNKNOWN INDICATION
     Dosage: 625 MILLIGRAM, 3 DOSE
     Route: 048
     Dates: start: 20190915, end: 20190916
  7. GENTAMICIN. [Concomitant]
     Active Substance: GENTAMICIN
     Dosage: 400 MILLIGRAM, UNK
     Route: 042
     Dates: start: 20190913, end: 20190913
  8. GENTAMICIN. [Concomitant]
     Active Substance: GENTAMICIN
     Dosage: 400 MILLIGRAM, UNK
     Route: 042
     Dates: start: 20190526, end: 20190526
  9. SODIUM CHLORIDE. [Concomitant]
     Active Substance: SODIUM CHLORIDE
     Indication: GASTROINTESTINAL HAEMORRHAGE
     Dosage: 500 MILLILITER, 0.18NA CL 4% GLUCOSE
     Route: 042
     Dates: start: 20190523, end: 20190523
  10. METOCLOPRAMIDE. [Concomitant]
     Active Substance: METOCLOPRAMIDE
     Indication: PRODUCT USED FOR UNKNOWN INDICATION
     Dosage: 10 MILLIGRAM, UNK
     Route: 048
     Dates: start: 20190909, end: 20190909
  11. RANITIDINE. [Concomitant]
     Active Substance: RANITIDINE
     Indication: PRODUCT USED FOR UNKNOWN INDICATION
     Dosage: 150 MILLIGRAM, UNK
     Route: 065
     Dates: start: 20181123, end: 20181123
  12. RED BLOOD CELLS [Concomitant]
     Active Substance: HUMAN RED BLOOD CELL
     Indication: HAEMORRHAGE
     Dosage: UNK
     Route: 042
     Dates: start: 20190511, end: 20190511
  13. SILVER NITRATE. [Concomitant]
     Active Substance: SILVER NITRATE
     Dosage: UNK
     Route: 061
     Dates: start: 20190527, end: 20190527
  14. TEICOPLANIN [Concomitant]
     Active Substance: TEICOPLANIN
     Indication: PRODUCT USED FOR UNKNOWN INDICATION
     Dosage: 400 MILLIGRAM, UNK
     Route: 065
     Dates: start: 20181220, end: 20181224
  15. TERBUTALINE [Concomitant]
     Active Substance: TERBUTALINE
     Indication: PRODUCT USED FOR UNKNOWN INDICATION
     Dosage: 200 MICROGRAM, DAILY
     Route: 055
     Dates: start: 20030108
  16. VANCOMYCIN [Concomitant]
     Active Substance: VANCOMYCIN
     Dosage: 2000 MILLIGRAM, UNK
     Route: 042
     Dates: start: 20181119, end: 20181119
  17. CHLORHEXIDINE [Concomitant]
     Active Substance: CHLORHEXIDINE
     Indication: PRODUCT USED FOR UNKNOWN INDICATION
     Dosage: 10 MILLILITER, UNK, AS NEEDED
     Route: 065
     Dates: start: 20181019
  18. CHLORPHENAMINE [Concomitant]
     Active Substance: CHLORPHENIRAMINE MALEATE
     Indication: PRODUCT USED FOR UNKNOWN INDICATION
     Dosage: 4 MILLIGRAM, 1 DOSE
     Route: 048
     Dates: start: 20190909, end: 20190915
  19. CIPROFLOXACIN. [Concomitant]
     Active Substance: CIPROFLOXACIN
     Indication: PRODUCT USED FOR UNKNOWN INDICATION
     Dosage: 500 MILLIGRAM, BID, UNTIL 09?OCT?2019
     Route: 048
     Dates: start: 201910
  20. COLECALCIFEROL [Concomitant]
     Active Substance: CHOLECALCIFEROL
     Dosage: 2 DOSAGE FORM, 2 DOSE
     Route: 048
     Dates: start: 20180920
  21. EUMOVATE [Concomitant]
     Active Substance: CLOBETASONE BUTYRATE
     Indication: PRURITUS
  22. FERROUS FUMARATE [Concomitant]
     Active Substance: FERROUS FUMARATE
     Indication: PRODUCT USED FOR UNKNOWN INDICATION
     Dosage: 210 MILLIGRAM, TID
     Route: 048
     Dates: start: 20190730
  23. FEXOFENADINE [Concomitant]
     Active Substance: FEXOFENADINE HYDROCHLORIDE
     Indication: PRURITUS
     Dosage: 180 MILLIGRAM, DAILY
     Route: 048
     Dates: start: 201910, end: 20191119
  24. SODIUM CHLORIDE. [Concomitant]
     Active Substance: SODIUM CHLORIDE
     Dosage: 500 MILLILITER
     Route: 042
     Dates: start: 20181123, end: 20181123
  25. METRONIDAZOLE. [Concomitant]
     Active Substance: METRONIDAZOLE
     Indication: SEPSIS
     Dosage: 500 MILLIGRAM, TID
     Route: 042
     Dates: start: 20190526
  26. OMEPRAZOLE. [Concomitant]
     Active Substance: OMEPRAZOLE
     Dosage: 20 MILLIGRAM, 1 DOSE
     Route: 048
     Dates: start: 20091014
  27. PARACETAMOL [Concomitant]
     Active Substance: ACETAMINOPHEN
     Dosage: 1 GRAM, AS NEEDED
     Route: 048
     Dates: start: 20181003
  28. QUININE SULPHATE [Concomitant]
     Active Substance: QUININE SULFATE
     Indication: PRODUCT USED FOR UNKNOWN INDICATION
     Dosage: 200 MILLIGRAM, 1 DOSE
     Route: 048
     Dates: start: 20040219
  29. RANITIDINE. [Concomitant]
     Active Substance: RANITIDINE
     Dosage: 50 MILLIGRAM, TAKEN PRIOR TO STUDY
     Route: 042
     Dates: start: 20180202
  30. SILVER NITRATE. [Concomitant]
     Active Substance: SILVER NITRATE
     Dosage: 1 UNIT, UNK
     Route: 061
     Dates: start: 20180329, end: 20180329
  31. SILVER NITRATE. [Concomitant]
     Active Substance: SILVER NITRATE
     Dosage: UNK
     Route: 061
     Dates: start: 20190730, end: 20190730
  32. METRONIDAZOLE. [Concomitant]
     Active Substance: METRONIDAZOLE
     Dosage: 400 MILLIGRAMS, UNK
     Route: 048
     Dates: start: 20190916, end: 20190916
  33. METRONIDAZOLE. [Concomitant]
     Active Substance: METRONIDAZOLE
     Dosage: 400 MILLIGRAM, UNK
     Route: 048
     Dates: start: 20190918, end: 20190918
  34. OMEPRAZOLE. [Concomitant]
     Active Substance: OMEPRAZOLE
     Indication: PRODUCT USED FOR UNKNOWN INDICATION
     Dosage: 40 MILLIGRAM, 2 DOSE
     Route: 048
     Dates: start: 20191107, end: 20200205
  35. ONDANSETRON [Concomitant]
     Active Substance: ONDANSETRON
     Dosage: 4 MILLIGRAM, UNK
     Route: 048
     Dates: start: 20200214, end: 20200214
  36. PARACETAMOL [Concomitant]
     Active Substance: ACETAMINOPHEN
     Indication: OEDEMA
     Dosage: 1 GRAM, UNK
     Route: 048
     Dates: start: 20180916, end: 20181002
  37. SILVER NITRATE. [Concomitant]
     Active Substance: SILVER NITRATE
     Dosage: UNK
     Route: 061
     Dates: start: 20190510, end: 20190510
  38. TRANEXAMIC ACID. [Concomitant]
     Active Substance: TRANEXAMIC ACID
     Indication: PRODUCT USED FOR UNKNOWN INDICATION
     Dosage: 1 GRAM, 3 DOSE
     Route: 048
     Dates: start: 20190804, end: 20190806
  39. VANCOMYCIN [Concomitant]
     Active Substance: VANCOMYCIN
     Dosage: 500 MILLIGRAM, UNK
     Route: 042
     Dates: start: 20181120, end: 20181122
  40. PACLITAXEL. [Suspect]
     Active Substance: PACLITAXEL
     Indication: BREAST CANCER
     Dosage: 156 MILLIGRAM, 1/WEEK
     Route: 042
     Dates: start: 20180202, end: 20180518
  41. CYCLIZINE [Concomitant]
     Active Substance: CYCLIZINE
     Indication: PRODUCT USED FOR UNKNOWN INDICATION
     Dosage: 50 MILLIGRAMS, UNK
     Route: 048
     Dates: start: 20181102
  42. TOLNAFTATE. [Concomitant]
     Active Substance: TOLNAFTATE
     Indication: PRODUCT USED FOR UNKNOWN INDICATION
     Dosage: UNK
     Route: 061
     Dates: start: 20181220, end: 20190116
  43. FEXOFENADINE [Concomitant]
     Active Substance: FEXOFENADINE HYDROCHLORIDE
     Indication: SKIN ABRASION
     Dosage: 180 MILLIGRAM, DAILY
     Route: 048
     Dates: start: 20190403, end: 20190403
  44. GENTAMICIN. [Concomitant]
     Active Substance: GENTAMICIN
     Dosage: 400 MILLIGRAM, UNK
     Route: 042
     Dates: start: 20190528, end: 20190528
  45. GLUCOSE [Concomitant]
     Active Substance: DEXTROSE
     Indication: GASTROINTESTINAL HAEMORRHAGE
     Dosage: 1000 MILLILITER, 0.18% NACL 4% GLUCOSE + 20MML KCL
     Route: 042
     Dates: start: 20190525, end: 20190525
  46. METRONIDAZOLE. [Concomitant]
     Active Substance: METRONIDAZOLE
     Dosage: 400 MILLIGRAMS, UNK
     Route: 065
     Dates: start: 20181122, end: 20181123
  47. ONDANSETRON [Concomitant]
     Active Substance: ONDANSETRON
     Indication: PRODUCT USED FOR UNKNOWN INDICATION
     Dosage: 4 MILLIGRAM, UNK, AS NEEDED
     Route: 048
     Dates: start: 20181216, end: 20190107
  48. PENTASA [Concomitant]
     Active Substance: MESALAMINE
     Indication: CROHN^S DISEASE
     Dosage: UNK, SACHETS
     Route: 048
     Dates: start: 20131217, end: 20180730
  49. PENTASA [Concomitant]
     Active Substance: MESALAMINE
     Route: 048
     Dates: start: 20180730
  50. RANITIDINE. [Concomitant]
     Active Substance: RANITIDINE
     Indication: PRODUCT USED FOR UNKNOWN INDICATION
     Dosage: 300 MILLIGRAM, 1 DOSE
     Route: 048
     Dates: start: 20200212
  51. ADCAL?D3 [Concomitant]
     Active Substance: CALCIUM CARBONATE\CHOLECALCIFEROL
     Indication: PRODUCT USED FOR UNKNOWN INDICATION
     Dosage: 2 DOSAGE FORM, BID
     Route: 048
     Dates: start: 20140127
  52. AMOXICILLIN. [Concomitant]
     Active Substance: AMOXICILLIN
     Indication: PRODUCT USED FOR UNKNOWN INDICATION
     Dosage: 1 GRAM, TID
     Route: 042
     Dates: start: 20190911, end: 20190915
  53. BENDROFLUMETHIAZIDE [Concomitant]
     Active Substance: BENDROFLUMETHIAZIDE
     Indication: PRODUCT USED FOR UNKNOWN INDICATION
     Dosage: 2.5 MILLIGRAM, 1 DOSE
     Route: 048
     Dates: start: 20190908
  54. CETIRIZINE [Concomitant]
     Active Substance: CETIRIZINE HYDROCHLORIDE
     Indication: PRODUCT USED FOR UNKNOWN INDICATION
     Dosage: 10 MICROGRAMS, UNK
     Route: 048
     Dates: start: 20080430
  55. DOXYCYCLINE. [Concomitant]
     Active Substance: DOXYCYCLINE
     Dosage: 100 MILLIGRAM, DAILY
     Route: 048
     Dates: start: 20181114, end: 20181119
  56. GENTAMICIN. [Concomitant]
     Active Substance: GENTAMICIN
     Indication: SEPSIS
     Dosage: 400 MILLIGRAM, UNK
     Route: 011
     Dates: start: 20190911, end: 20190911
  57. METOCLOPRAMIDE. [Concomitant]
     Active Substance: METOCLOPRAMIDE
     Dosage: AS NEEDED
     Route: 048
     Dates: start: 201910
  58. METRONIDAZOLE. [Concomitant]
     Active Substance: METRONIDAZOLE
     Dosage: 400 MILLIGRAM, 3 DOSE
     Route: 048
     Dates: start: 201910
  59. PIRITON [Concomitant]
     Active Substance: CHLORPHENIRAMINE MALEATE
     Indication: PRODUCT USED FOR UNKNOWN INDICATION
     Dosage: 4 MILLIGRAM
     Route: 048
     Dates: start: 20180125
  60. SUGAMMADEX [Concomitant]
     Active Substance: SUGAMMADEX
     Indication: PRODUCT USED FOR UNKNOWN INDICATION
     Dosage: 200 MILLIGRAM, UNK
     Route: 042
     Dates: start: 20181220, end: 20181220
  61. LETROZOLE. [Suspect]
     Active Substance: LETROZOLE
     Indication: BREAST CANCER
     Dosage: 2.5 MILLIGRAM, DAILY
     Route: 048
     Dates: start: 20180525, end: 20181011
  62. LETROZOLE. [Suspect]
     Active Substance: LETROZOLE
     Dosage: 2.5 MILLIGRAM, DAILY
     Route: 048
     Dates: start: 20180119, end: 20180126
  63. TRASTUZUMAB. [Suspect]
     Active Substance: TRASTUZUMAB
     Indication: BREAST CANCER
     Dosage: 600 MILLIGRAM
     Route: 058
     Dates: start: 20180202, end: 20180827
  64. CARMELLOSE SODIUM [Concomitant]
     Active Substance: CARBOXYMETHYLCELLULOSE SODIUM
     Indication: PRODUCT USED FOR UNKNOWN INDICATION
     Dosage: UNK
     Route: 061
     Dates: start: 20181220, end: 20190116
  65. BENDROFLUMETHIAZIDE [Concomitant]
     Active Substance: BENDROFLUMETHIAZIDE
     Dosage: 2.5 MILLIGRAM, 1 DOSE
     Route: 048
     Dates: start: 20030114
  66. COLECALCIFEROL [Concomitant]
     Active Substance: CHOLECALCIFEROL
     Indication: PRODUCT USED FOR UNKNOWN INDICATION
     Dosage: UNK UNK, BID
     Route: 048
     Dates: start: 20180926
  67. HYDROCORTISONE. [Concomitant]
     Active Substance: HYDROCORTISONE
     Indication: PRODUCT USED FOR UNKNOWN INDICATION
     Dosage: UNK, AS NEEDED
     Route: 061
     Dates: start: 20180605
  68. DOXAZOSIN [Concomitant]
     Active Substance: DOXAZOSIN MESYLATE
     Indication: PRODUCT USED FOR UNKNOWN INDICATION
     Dosage: 2 MILLIGRAM, DAILY
     Route: 048
     Dates: start: 20040816
  69. DOXYCYCLINE. [Concomitant]
     Active Substance: DOXYCYCLINE
     Indication: PRODUCT USED FOR UNKNOWN INDICATION
     Dosage: 100 MILLIGRAM, BID
     Route: 048
     Dates: start: 20181113, end: 20181113
  70. FLUCONAZOLE. [Concomitant]
     Active Substance: FLUCONAZOLE
     Indication: PRODUCT USED FOR UNKNOWN INDICATION
     Dosage: 100 MILLIGRAM, DAILY
     Route: 048
     Dates: start: 20180125
  71. FOLIC ACID. [Concomitant]
     Active Substance: FOLIC ACID
     Indication: PRODUCT USED FOR UNKNOWN INDICATION
     Dosage: 5 MILLIGRAM, DAILY
     Route: 048
     Dates: start: 20030207
  72. METOCLOPRAMIDE. [Concomitant]
     Active Substance: METOCLOPRAMIDE
     Indication: PRODUCT USED FOR UNKNOWN INDICATION
     Dosage: 10 MILLIGRAM, UNK, TAKEN PRIOR TO STUDY
     Route: 048
     Dates: start: 20180202
  73. ONDANSETRON [Concomitant]
     Active Substance: ONDANSETRON
     Dosage: 4 MILLIGRAM, UNK
     Route: 048
     Dates: start: 20190920, end: 20190920
  74. RED BLOOD CELLS [Concomitant]
     Active Substance: HUMAN RED BLOOD CELL
     Indication: GASTROINTESTINAL HAEMORRHAGE
     Dosage: 3 UNIT, UNK
     Route: 042
     Dates: start: 20190523, end: 20190524
  75. TRIMETHOPRIM. [Concomitant]
     Active Substance: TRIMETHOPRIM
     Indication: PRODUCT USED FOR UNKNOWN INDICATION
     Dosage: 200 MILLIGRAM, 2 DOSE
     Route: 048
     Dates: start: 20190813, end: 20190815
  76. VANCOMYCIN [Concomitant]
     Active Substance: VANCOMYCIN
     Indication: SEPSIS
     Dosage: 2000 MILLIGRAM
     Route: 042
     Dates: start: 20190526, end: 20190526
  77. VANCOMYCIN [Concomitant]
     Active Substance: VANCOMYCIN
     Dosage: 500 MILLIGRAM, 2 DOSE
     Route: 042
     Dates: start: 20190527
  78. ZOLEDRONIC ACID [Concomitant]
     Active Substance: ZOLEDRONIC ACID
     Indication: METASTASES TO BONE
     Dosage: 4 MILLIGRAM, UNK
     Route: 042
     Dates: start: 20181019
  79. BENZYDAMINE [Concomitant]
     Active Substance: BENZYDAMINE
     Indication: PRODUCT USED FOR UNKNOWN INDICATION
     Dosage: 5 MILLILITER, MOUTHWASH, UNK
     Route: 065
     Dates: start: 20180414
  80. GENTAMICIN. [Concomitant]
     Active Substance: GENTAMICIN
     Dosage: 400 MILLIGRAM, UNK
     Route: 042
     Dates: start: 20181119, end: 20181119
  81. HYDROXOCOBALAMIN [Concomitant]
     Active Substance: HYDROXOCOBALAMIN
     Indication: PRODUCT USED FOR UNKNOWN INDICATION
     Dosage: 1 MILLIGRAM, UNK, 1 MG/1 ML
     Route: 030
     Dates: start: 20020115
  82. METRONIDAZOLE. [Concomitant]
     Active Substance: METRONIDAZOLE
     Dosage: 500 MILLIGRAM, TID
     Route: 042
     Dates: start: 20181119, end: 20181121
  83. ONDANSETRON [Concomitant]
     Active Substance: ONDANSETRON
     Indication: PRODUCT USED FOR UNKNOWN INDICATION
     Dosage: 4 MILLIGRAM, AS NEEDED
     Route: 042
     Dates: start: 20181119, end: 20181122
  84. PARACETAMOL [Concomitant]
     Active Substance: ACETAMINOPHEN
     Indication: PRODUCT USED FOR UNKNOWN INDICATION
     Dosage: 1 GRAM, UNK
     Route: 042
     Dates: start: 20181220, end: 20181220
  85. CLARITHROMYCIN. [Concomitant]
     Active Substance: CLARITHROMYCIN
     Indication: PRODUCT USED FOR UNKNOWN INDICATION
     Dosage: 500 MILLIGRAM, 2 DOSE
     Route: 048
     Dates: start: 20190717, end: 20190724
  86. DOXAZOSIN [Concomitant]
     Active Substance: DOXAZOSIN MESYLATE
     Dosage: 2 MILLIGRAM, DAILY
     Route: 048
     Dates: start: 20190908
  87. EUMOVATE [Concomitant]
     Active Substance: CLOBETASONE BUTYRATE
     Indication: SKIN ABRASION
     Dosage: UNK
     Route: 061
     Dates: start: 20190403
  88. SODIUM CHLORIDE. [Concomitant]
     Active Substance: SODIUM CHLORIDE
     Dosage: 500 MILLILITER
     Route: 042
     Dates: start: 20181122, end: 20181123
  89. SODIUM CHLORIDE. [Concomitant]
     Active Substance: SODIUM CHLORIDE
     Dosage: 500 MILLILITER
     Route: 042
     Dates: start: 20190522, end: 20190522
  90. HEPARIN SODIUM. [Concomitant]
     Active Substance: HEPARIN SODIUM
     Indication: PROPHYLAXIS
     Dosage: 5 MILLILITER, UNK
     Route: 042
     Dates: start: 20190502, end: 20191106
  91. METRONIDAZOLE. [Concomitant]
     Active Substance: METRONIDAZOLE
     Indication: PRODUCT USED FOR UNKNOWN INDICATION
     Dosage: 500 MILLIGRAM, 3 DOSE
     Route: 048
     Dates: start: 20190911, end: 20190915
  92. PARACETAMOL [Concomitant]
     Active Substance: ACETAMINOPHEN
     Dosage: 1 GRAM, UNK
     Route: 048
     Dates: start: 20180225, end: 20180301
  93. SILVER NITRATE. [Concomitant]
     Active Substance: SILVER NITRATE
     Indication: HAEMORRHAGE
     Dosage: UNK
     Route: 061
     Dates: start: 20190522, end: 20190522

REACTIONS (9)
  - Vomiting [Recovered/Resolved]
  - Diarrhoea [Recovered/Resolved]
  - Cancer pain [Recovered/Resolved]
  - C-reactive protein increased [Recovered/Resolved]
  - Oedema peripheral [Recovered/Resolved]
  - Mucosal inflammation [Recovered/Resolved]
  - Bone pain [Recovered/Resolved]
  - Wound [Recovered/Resolved]
  - Arthralgia [Not Recovered/Not Resolved]

NARRATIVE: CASE EVENT DATE: 20180225
